FAERS Safety Report 5367718-8 (Version None)
Quarter: 2007Q2

REPORT INFORMATION
  Report Type: 
  Country: None (occurrence: None)
  Receive Date: 20070622
  Receipt Date: 20070606
  Transmission Date: 20071010
  Serious: Yes (Other)
  Sender: FDA-Public Use
  Company Number: US-ASTRAZENECA-2007UW07141

PATIENT
  Age: 33 Year
  Sex: Female
  Weight: 63.5 kg

DRUGS (1)
  1. PULMICORT RESPULES [Suspect]
     Route: 055
     Dates: start: 20061117, end: 20070401

REACTIONS (3)
  - ACCIDENTAL EXPOSURE [None]
  - GLAUCOMA [None]
  - INTRAOCULAR PRESSURE INCREASED [None]
